FAERS Safety Report 8469233-1 (Version None)
Quarter: 2012Q2

REPORT INFORMATION
  Report Type: 
  Country: None (occurrence: None)
  Receive Date: 20120626
  Receipt Date: 20110811
  Transmission Date: 20120825
  Serious: Yes (Other)
  Sender: FDA-Public Use
  Company Number: US-ROCHE-797651

PATIENT
  Sex: Female

DRUGS (4)
  1. HERCEPTIN [Suspect]
     Indication: BREAST CANCER METASTATIC
     Dosage: DATE OF USE: APPROXIMATELY 19 MONTHS AGO
     Route: 065
     Dates: start: 20100101, end: 20100301
  2. TYKERB [Concomitant]
  3. HERCEPTIN [Suspect]
     Route: 065
  4. XELODA [Suspect]
     Indication: BREAST CANCER METASTATIC
     Dosage: DATE OF USE: APPROXIMATELY 18 MONTHS AGO
     Route: 065

REACTIONS (1)
  - METASTASES TO CENTRAL NERVOUS SYSTEM [None]
